FAERS Safety Report 9628828 (Version 1)
Quarter: 2013Q4

REPORT INFORMATION
  Report Type: Spontaneous
  Country: US (occurrence: US)
  Receive Date: 20131017
  Receipt Date: 20131017
  Transmission Date: 20140711
  Serious: No
  Sender: FDA-Public Use
  Company Number: US-GLAXOSMITHKLINE-A0992910A

PATIENT
  Age: 6 Year
  Sex: Male

DRUGS (2)
  1. CEFTIN [Suspect]
     Dosage: 1.5TSP TWICE PER DAY
     Route: 048
     Dates: start: 20120909
  2. TYLENOL [Concomitant]

REACTIONS (1)
  - Vomiting [Unknown]
